FAERS Safety Report 22040313 (Version 1)
Quarter: 2023Q1

REPORT INFORMATION
  Report Type: Spontaneous
  Country: CN (occurrence: CN)
  Receive Date: 20230227
  Receipt Date: 20230227
  Transmission Date: 20230418
  Serious: Yes (Other)
  Sender: FDA-Public Use
  Company Number: CN-UCBSA-2022039892

PATIENT
  Age: 40 Year
  Sex: Female
  Weight: 44 kg

DRUGS (2)
  1. CIMZIA [Suspect]
     Active Substance: CERTOLIZUMAB PEGOL
     Indication: Ankylosing spondylitis
     Dosage: 200 MILLIGRAM, EV 2 WEEKS(QOW)
     Route: 058
     Dates: start: 20220705
  2. CIMZIA [Suspect]
     Active Substance: CERTOLIZUMAB PEGOL
     Indication: Off label use

REACTIONS (5)
  - Ankylosing spondylitis [Unknown]
  - Caesarean section [Unknown]
  - Maternal exposure during pregnancy [Unknown]
  - Maternal exposure during breast feeding [Unknown]
  - Off label use [Unknown]

NARRATIVE: CASE EVENT DATE: 20220705
